FAERS Safety Report 6202540-1 (Version None)
Quarter: 2009Q2

REPORT INFORMATION
  Report Type: 
  Country: None (occurrence: None)
  Receive Date: 20090521
  Receipt Date: 20090521
  Transmission Date: 20091009
  Serious: Yes (Other)
  Sender: FDA-Public Use
  Company Number: None

PATIENT
  Age: 42 Year
  Sex: Female
  Weight: 58.9676 kg

DRUGS (1)
  1. BIAXIN [Suspect]

REACTIONS (3)
  - DYSPNOEA [None]
  - LIP SWELLING [None]
  - SWELLING FACE [None]
